FAERS Safety Report 5368152-7 (Version None)
Quarter: 2007Q2

REPORT INFORMATION
  Report Type: 
  Country: None (occurrence: None)
  Receive Date: 20070620
  Receipt Date: 20070606
  Transmission Date: 20071010
  Serious: Yes (Other)
  Sender: FDA-Public Use
  Company Number: 2007SP011572

PATIENT
  Age: 12 Year
  Sex: Male

DRUGS (2)
  1. CLARITIN [Suspect]
     Indication: RHINORRHOEA
     Dosage: 10 MG; PO
     Route: 048
     Dates: start: 20070501, end: 20070606
  2. CLARITIN [Suspect]
     Indication: SNEEZING
     Dosage: 10 MG; PO
     Route: 048
     Dates: start: 20070501, end: 20070606

REACTIONS (2)
  - SWELLING FACE [None]
  - URTICARIA GENERALISED [None]
